FAERS Safety Report 6655709-6 (Version None)
Quarter: 2010Q1

REPORT INFORMATION
  Report Type: 
  Country: None (occurrence: None)
  Receive Date: 20100329
  Receipt Date: 20100323
  Transmission Date: 20100710
  Serious: Yes (Hospitalization)
  Sender: FDA-Public Use
  Company Number: CN-ROCHE-558231

PATIENT
  Sex: Female
  Weight: 50 kg

DRUGS (4)
  1. MYCOPHENOLATE MOFETIL [Suspect]
     Indication: LUPUS NEPHRITIS
     Dosage: DOSAGE FORM  REPORTED AS 0.5 G. FORM AS PER PROTOCOL- TABLET.DRUG WAS PERMANENTLY DISCONTINUED.
     Route: 048
     Dates: start: 20060429, end: 20061024
  2. MYCOPHENOLATE MOFETIL [Suspect]
     Indication: LUPUS NEPHRITIS
     Dosage: DOSE- BLINDED, FORM- TABLET ( AS PER PROTOCOL).
     Route: 048
     Dates: start: 20061030
  3. AZATHIOPRINE [Suspect]
     Indication: LUPUS NEPHRITIS
     Dosage: DOSAGE FORM-TABLET AS PER PROTOCOL, DOSE-BLINDED.
     Route: 048
     Dates: start: 20061030
  4. PREDNISOLONE [Suspect]
     Indication: LUPUS NEPHRITIS
     Dosage: FREQUENCY REPORTED AS OF M.FREQUENCY- GM, FORM- 5MG TAB
     Route: 048
     Dates: start: 20060626

REACTIONS (1)
  - TONSILLITIS [None]
